FAERS Safety Report 6271896-6 (Version None)
Quarter: 2009Q3

REPORT INFORMATION
  Report Type: 
  Country: None (occurrence: None)
  Receive Date: 20090717
  Receipt Date: 20090717
  Transmission Date: 20100115
  Serious: Yes (Hospitalization)
  Sender: FDA-Public Use
  Company Number: PHHO2008JP09786

PATIENT
  Sex: Male
  Weight: 62 kg

DRUGS (5)
  1. EXELON [Suspect]
     Indication: DEMENTIA ALZHEIMER'S TYPE
     Dosage: 2.5CM2 - 10CM2
     Route: 062
     Dates: start: 20080606, end: 20080809
  2. EXELON [Suspect]
     Dosage: UNK
     Dates: start: 20080810, end: 20080827
  3. EXELON [Suspect]
     Dosage: DOUBLE BLIND
     Route: 062
     Dates: start: 20080828
  4. OLMETEC [Concomitant]
     Indication: HYPERTENSION
  5. AMLODIPINE [Concomitant]

REACTIONS (8)
  - BLOOD CREATININE INCREASED [None]
  - BLOOD UREA INCREASED [None]
  - COLD SWEAT [None]
  - HEAT ILLNESS [None]
  - HYPERKALAEMIA [None]
  - NAUSEA [None]
  - RENAL IMPAIRMENT [None]
  - SYNCOPE [None]
